FAERS Safety Report 22174560 (Version 2)
Quarter: 2024Q3

REPORT INFORMATION
  Report Type: Spontaneous
  Country: JP (occurrence: JP)
  Receive Date: 20230405
  Receipt Date: 20240823
  Transmission Date: 20241017
  Serious: Yes (Other)
  Sender: RECORDATI
  Company Number: JP-RECORDATI-2023001921

PATIENT

DRUGS (4)
  1. OSILODROSTAT [Suspect]
     Active Substance: OSILODROSTAT
     Indication: Pituitary-dependent Cushing^s syndrome
     Dosage: 10 MILLIGRAM
  2. PASIREOTIDE [Suspect]
     Active Substance: PASIREOTIDE
     Indication: Pituitary-dependent Cushing^s syndrome
     Dosage: UNK
  3. PASIREOTIDE [Suspect]
     Active Substance: PASIREOTIDE
     Dosage: 30 MILLIGRAM
  4. METYRAPONE [Suspect]
     Active Substance: METYRAPONE
     Indication: Pituitary-dependent Cushing^s syndrome
     Dosage: 4000 MILLIGRAM

REACTIONS (2)
  - Pituitary tumour [Unknown]
  - Therapy non-responder [Recovered/Resolved]
